FAERS Safety Report 4461992-8 (Version None)
Quarter: 2004Q3

REPORT INFORMATION
  Report Type: 
  Country: None (occurrence: None)
  Receive Date: 20040924
  Receipt Date: 20040913
  Transmission Date: 20050211
  Serious: No
  Sender: FDA-Public Use
  Company Number: CHNY2004JP01257

PATIENT
  Age: 76 Year
  Sex: Male
  Weight: 60 kg

DRUGS (1)
  1. NICOTINE [Suspect]
     Indication: SMOKING CESSATION THERAPY
     Dosage: 21 MG, QD, TRANSDERMAL
     Route: 062
     Dates: start: 20040528, end: 20040601

REACTIONS (10)
  - APPLICATION SITE BURNING [None]
  - APPLICATION SITE ERYTHEMA [None]
  - APPLICATION SITE PIGMENTATION CHANGES [None]
  - APPLICATION SITE SCAR [None]
  - APPLICATION SITE WARMTH [None]
  - DERMATITIS CONTACT [None]
  - FIBROUS HISTIOCYTOMA [None]
  - HYPERKERATOSIS [None]
  - RASH PAPULAR [None]
  - SKIN ULCER [None]
